FAERS Safety Report 9055024 (Version 1)
Quarter: 2013Q1

REPORT INFORMATION
  Report Type: Spontaneous
  Country: JP (occurrence: JP)
  Receive Date: 20130206
  Receipt Date: 20130206
  Transmission Date: 20140127
  Serious: Yes (Death)
  Sender: FDA-Public Use
  Company Number: JP-ROCHE-1186242

PATIENT
  Sex: 0

DRUGS (1)
  1. ACTEMRA [Suspect]
     Indication: CASTLEMAN^S DISEASE
     Dosage: UNCERTAIN DOSAGE AND 6-8 TIME ADMINISTERING
     Route: 041
     Dates: start: 20121126

REACTIONS (1)
  - Subdural haemorrhage [Fatal]
